FAERS Safety Report 5802851-5 (Version None)
Quarter: 2008Q3

REPORT INFORMATION
  Report Type: 
  Country: None (occurrence: None)
  Receive Date: 20080703
  Receipt Date: 20080619
  Transmission Date: 20090109
  Serious: Yes (Other)
  Sender: FDA-Public Use
  Company Number: 2008S1011257

PATIENT
  Age: 30 Year
  Sex: Female

DRUGS (1)
  1. WARFARIN SODIUM [Suspect]
     Indication: CARDIAC ASSISTANCE DEVICE USER

REACTIONS (2)
  - DRUG INTOLERANCE [None]
  - INTERNATIONAL NORMALISED RATIO INCREASED [None]
